FAERS Safety Report 13982594 (Version 1)
Quarter: 2017Q3

REPORT INFORMATION
  Report Type: Spontaneous
  Country: US (occurrence: US)
  Receive Date: 20170918
  Receipt Date: 20170918
  Transmission Date: 20171128
  Serious: No
  Sender: FDA-Public Use
  Company Number: US-LEADIANT BIOSCIENCES INC-2016STPI000730

PATIENT
  Age: 33 Year
  Sex: Female

DRUGS (18)
  1. VIMPAT [Concomitant]
     Active Substance: LACOSAMIDE
  2. MATULANE [Suspect]
     Active Substance: PROCARBAZINE HYDROCHLORIDE
     Indication: BRAIN NEOPLASM MALIGNANT
     Dosage: 100 MG QOD
     Route: 048
     Dates: start: 20160602
  3. BOSULIF [Concomitant]
     Active Substance: BOSUTINIB MONOHYDRATE
  4. FIBER [Concomitant]
     Active Substance: PSYLLIUM HUSK
  5. FISH OIL [Concomitant]
     Active Substance: FISH OIL
  6. ATIVAN [Concomitant]
     Active Substance: LORAZEPAM
  7. DEPAKOTE [Concomitant]
     Active Substance: DIVALPROEX SODIUM
  8. MULTIVITAMIN                       /00097801/ [Concomitant]
     Active Substance: VITAMINS
  9. ZANTAC [Concomitant]
     Active Substance: RANITIDINE HYDROCHLORIDE
  10. ESTRADIOL. [Concomitant]
     Active Substance: ESTRADIOL
  11. LUNESTA [Concomitant]
     Active Substance: ESZOPICLONE
  12. ARMOUR THYROID [Concomitant]
     Active Substance: THYROID, PORCINE
  13. MATULANE [Suspect]
     Active Substance: PROCARBAZINE HYDROCHLORIDE
     Dosage: 150 MG QOD
     Route: 048
     Dates: start: 20160602
  14. KEPPRA [Concomitant]
     Active Substance: LEVETIRACETAM
  15. FOLIC ACID. [Concomitant]
     Active Substance: FOLIC ACID
  16. VITAMIN B12 [Concomitant]
     Active Substance: CYANOCOBALAMIN
  17. VITAMIN D                          /00107901/ [Concomitant]
     Active Substance: ERGOCALCIFEROL
  18. DULOXETINE. [Concomitant]
     Active Substance: DULOXETINE

REACTIONS (1)
  - Platelet count decreased [Unknown]

NARRATIVE: CASE EVENT DATE: 201609
